FAERS Safety Report 8514185-9 (Version None)
Quarter: 2012Q3

REPORT INFORMATION
  Report Type: 
  Country: None (occurrence: None)
  Receive Date: 20120717
  Receipt Date: 20120716
  Transmission Date: 20120928
  Serious: Yes (Other)
  Sender: FDA-Public Use
  Company Number: US-PFIZER INC-2012165159

PATIENT
  Sex: Female
  Weight: 73.016 kg

DRUGS (8)
  1. METOPROLOL [Concomitant]
     Indication: HYPERTENSION
     Dosage: 100 MG, 2X/DAY
  2. ASPIRIN [Concomitant]
     Indication: LUNG DISORDER
     Dosage: 81 MG, DAILY
  3. HYDROCHLOROTHIAZIDE [Concomitant]
     Indication: OEDEMA PERIPHERAL
     Dosage: 25 MG, DAILY
  4. LISINOPRIL [Concomitant]
     Indication: HYPERTENSION
     Dosage: 40 MG, DAILY
  5. HYDRALAZINE [Concomitant]
     Indication: HYPERTENSION
     Dosage: 50 MG, 3X/DAY
  6. DILTIAZEM [Concomitant]
     Indication: HYPERTENSION
     Dosage: 60 MG, 3X/DAY
  7. REVATIO [Suspect]
     Indication: LUNG DISORDER
     Dosage: 20 MG, 3X/DAY
     Route: 048
  8. HYDROCHLOROTHIAZIDE [Concomitant]

REACTIONS (4)
  - VISION BLURRED [None]
  - ACCOMMODATION DISORDER [None]
  - FLUSHING [None]
  - FEELING HOT [None]
